FAERS Safety Report 19839276 (Version 2)
Quarter: 2021Q4

REPORT INFORMATION
  Report Type: Report from Study
  Country: GB (occurrence: GB)
  Receive Date: 20210916
  Receipt Date: 20211008
  Transmission Date: 20220303
  Serious: Yes (Hospitalization)
  Sender: FDA-Public Use
  Company Number: GB-ROCHE-2907087

PATIENT
  Age: 61 Year
  Sex: Male
  Weight: 106.5 kg

DRUGS (27)
  1. OCRELIZUMAB [Suspect]
     Active Substance: OCRELIZUMAB
     Indication: Primary progressive multiple sclerosis
     Dosage: SUBSEQUENT DOSE OF BLINDED OCRELIZUMAB ON 09/NOV/2012, 12/APR/2013, 26/APR/2013, 11/OCT/2013, 27/SEP
     Route: 042
     Dates: start: 20121026
  2. OCRELIZUMAB [Suspect]
     Active Substance: OCRELIZUMAB
     Indication: Primary progressive multiple sclerosis
     Dosage: TWO IV INFUSIONS OF OCRELIZUMAB 300 MG FOR CYCLE 1 AND SINGLE IV INFUSION OF OCRELIZUMAB 600 MG FOR
     Route: 042
     Dates: start: 20160125
  3. OCRELIZUMAB [Suspect]
     Active Substance: OCRELIZUMAB
     Dosage: SUBSEQUENT DOSE OF OCRELIZUMAB ON 02/JUN/2017 (520 ML), 24/NOV/2017 (520 ML), 11/MAY/2018 (520 ML),
     Route: 042
     Dates: start: 20161216
  4. PARAFFIN\WAX, EMULSIFYING [Concomitant]
     Active Substance: PARAFFIN\WAX, EMULSIFYING
     Dates: start: 20160510
  5. AMOXICILLIN [Concomitant]
     Active Substance: AMOXICILLIN
     Indication: Lower respiratory tract infection
     Dates: start: 20130117, end: 20130128
  6. AMOXICILLIN [Concomitant]
     Active Substance: AMOXICILLIN
     Indication: Ear infection
     Dates: start: 20150319, end: 20150326
  7. AMOXICILLIN [Concomitant]
     Active Substance: AMOXICILLIN
     Dates: start: 20141102, end: 20141108
  8. AMOXICILLIN [Concomitant]
     Active Substance: AMOXICILLIN
     Dates: start: 20121019, end: 20121025
  9. AMOXICILLIN [Concomitant]
     Active Substance: AMOXICILLIN
     Dates: start: 20170418, end: 20170420
  10. AMOXICILLIN [Concomitant]
     Active Substance: AMOXICILLIN
     Dates: start: 20161213, end: 20161220
  11. CHLORPHENIRAMINE MALEATE [Concomitant]
     Active Substance: CHLORPHENIRAMINE MALEATE
     Indication: Rash
     Dosage: SUBSEQUENT DOSE OF CHLORPHENAMINE ON  09/NOV/2012, 26/APR/2013, 11/OCT/2013, 27/SEP/2013, 14/MAR/201
     Dates: start: 20121026
  12. CHLORPHENIRAMINE MALEATE [Concomitant]
     Active Substance: CHLORPHENIRAMINE MALEATE
     Dates: start: 20160618, end: 20160630
  13. METHYLPREDNISOLONE [Concomitant]
     Active Substance: METHYLPREDNISOLONE
     Dosage: SUBSEQUENT DOSE OF METHYLPREDNISOLONE:  09/NOV/2012, 12/APR/2013, 26/APR/2013, 11/OCT/2013, 27/SEP/2
     Dates: start: 20121026
  14. SODIUM CHLORIDE [Concomitant]
     Active Substance: SODIUM CHLORIDE
     Dates: start: 20160715
  15. ACETAMINOPHEN [Concomitant]
     Active Substance: ACETAMINOPHEN
     Dosage: SUBSEQUENT DOSE OF PARACETAMOLL: 09/NOV/2012, 12/APR/2013, 26/APR/2013, 11/OCT/2013, 27/SEP/2013, 14
     Dates: start: 20121026
  16. BACLOFEN [Concomitant]
     Active Substance: BACLOFEN
     Indication: Muscle spasticity
     Dates: start: 201208, end: 201706
  17. BACLOFEN [Concomitant]
     Active Substance: BACLOFEN
     Dates: start: 20171124
  18. AZITHROMYCIN ANHYDROUS [Concomitant]
     Active Substance: AZITHROMYCIN ANHYDROUS
     Indication: Lower respiratory tract infection
     Dates: start: 20191210
  19. BECLOMETHASONE DIPROPIONATE [Concomitant]
     Active Substance: BECLOMETHASONE DIPROPIONATE
     Indication: Asthma
     Dates: start: 200811
  20. DERMOL [Concomitant]
     Active Substance: BENZALKONIUM CHLORIDE\CHLORHEXIDINE HYDROCHLORIDE\ISOPROPYL MYRISTATE\PARAFFIN
     Dates: start: 20170420
  21. DERMOVATE NN [Concomitant]
     Dates: start: 20160624
  22. BECLOMETHASONE\FORMOTEROL [Concomitant]
     Active Substance: BECLOMETHASONE\FORMOTEROL
     Indication: Asthma
     Dosage: INHALATION
     Dates: start: 20180421
  23. SILDENAFIL [Concomitant]
     Active Substance: SILDENAFIL
     Indication: Erectile dysfunction
     Dates: start: 201106
  24. ALBUTEROL [Concomitant]
     Active Substance: ALBUTEROL
     Indication: Asthma
     Dates: start: 20081101
  25. IBUPROFEN [Concomitant]
     Active Substance: IBUPROFEN
     Dates: start: 20140201
  26. GABAPENTIN [Concomitant]
     Active Substance: GABAPENTIN
     Indication: Trigeminal neuralgia
     Dates: start: 20161130, end: 20170526
  27. GABAPENTIN [Concomitant]
     Active Substance: GABAPENTIN
     Dates: start: 20170602

REACTIONS (1)
  - Cellulitis [Not Recovered/Not Resolved]

NARRATIVE: CASE EVENT DATE: 20210802
